FAERS Safety Report 5207481-4 (Version None)
Quarter: 2007Q1

REPORT INFORMATION
  Report Type: 
  Country: None (occurrence: None)
  Receive Date: 20070112
  Receipt Date: 20070105
  Transmission Date: 20070707
  Serious: Yes (Hospitalization)
  Sender: FDA-Public Use
  Company Number: US-ABBOTT-07P-163-0355126-00

PATIENT
  Sex: Female
  Weight: 72.64 kg

DRUGS (5)
  1. HUMIRA [Suspect]
     Indication: RHEUMATOID ARTHRITIS
     Route: 058
     Dates: start: 20030101
  2. HUMIRA [Suspect]
     Route: 058
     Dates: start: 20050101, end: 20060101
  3. HUMIRA [Suspect]
     Route: 058
     Dates: start: 20060101, end: 20061001
  4. HUMIRA [Suspect]
     Route: 058
     Dates: start: 20061001
  5. ETANERCEPT [Concomitant]
     Indication: RHEUMATOID ARTHRITIS
     Dates: end: 20050101

REACTIONS (4)
  - CELLULITIS [None]
  - CHONDROPATHY [None]
  - INTERVERTEBRAL DISC DISORDER [None]
  - SCOLIOSIS [None]
